FAERS Safety Report 8231434-5 (Version None)
Quarter: 2012Q1

REPORT INFORMATION
  Report Type: 
  Country: None (occurrence: None)
  Receive Date: 20120323
  Receipt Date: 20120315
  Transmission Date: 20120608
  Serious: Yes (Hospitalization)
  Sender: FDA-Public Use
  Company Number: US-AMGEN-USASP2012017013

PATIENT
  Age: 64 Year
  Sex: Male

DRUGS (1)
  1. ENBREL [Suspect]
     Indication: RHEUMATOID ARTHRITIS
     Dosage: 50 MG, QWK
     Dates: start: 20110620, end: 20111001

REACTIONS (9)
  - HYPOAESTHESIA [None]
  - KIDNEY INFECTION [None]
  - PARANASAL SINUS HYPERSECRETION [None]
  - EAR PAIN [None]
  - POLLAKIURIA [None]
  - SINUS CONGESTION [None]
  - SINUSITIS [None]
  - SPINAL DISORDER [None]
  - EAR INFECTION [None]
